FAERS Safety Report 6176929-3 (Version None)
Quarter: 2009Q2

REPORT INFORMATION
  Report Type: 
  Country: None (occurrence: None)
  Receive Date: 20090501
  Receipt Date: 20090422
  Transmission Date: 20091009
  Serious: Yes (Death, Other)
  Sender: FDA-Public Use
  Company Number: SE-AMGEN-US344384

PATIENT
  Sex: Female

DRUGS (3)
  1. ENBREL [Suspect]
     Indication: RHEUMATOID ARTHRITIS
     Dosage: DOSE 50 MG WEEKLY
  2. METHOTREXATE [Concomitant]
  3. PARACETAMOL [Concomitant]

REACTIONS (3)
  - MYOCARDIAL INFARCTION [None]
  - PYREXIA [None]
  - SEPSIS [None]
